FAERS Safety Report 8504599-5 (Version None)
Quarter: 2012Q3

REPORT INFORMATION
  Report Type: 
  Country: None (occurrence: None)
  Receive Date: 20120711
  Receipt Date: 20120705
  Transmission Date: 20120928
  Serious: Yes (Hospitalization, Other)
  Sender: FDA-Public Use
  Company Number: DE-ABBOTT-11P-062-0857112-00

PATIENT
  Sex: Female
  Weight: 58.2 kg

DRUGS (5)
  1. HUMIRA [Suspect]
     Route: 058
  2. SYSTEMIC STEROIDS [Concomitant]
     Indication: CROHN'S DISEASE
     Route: 048
  3. HUMIRA [Suspect]
     Indication: CROHN'S DISEASE
     Route: 058
     Dates: start: 20110201, end: 20111001
  4. AZATHIOPRINE [Concomitant]
     Dosage: DAILY DOSE 100 MG
     Dates: start: 20101101, end: 20111001
  5. AZATHIOPRINE [Concomitant]
     Indication: CROHN'S DISEASE
     Dates: start: 20070301, end: 20090201

REACTIONS (8)
  - CROHN'S DISEASE [None]
  - ILEITIS [None]
  - ILEAL ULCER [None]
  - ILEAL STENOSIS [None]
  - GASTROINTESTINAL OEDEMA [None]
  - ILEAL FISTULA [None]
  - SMALL INTESTINAL HAEMORRHAGE [None]
  - PSEUDOPOLYP [None]
